FAERS Safety Report 7807759-1 (Version None)
Quarter: 2011Q4

REPORT INFORMATION
  Report Type: 
  Country: None (occurrence: None)
  Receive Date: 20111011
  Receipt Date: 20110930
  Transmission Date: 20120403
  Serious: Yes (Hospitalization)
  Sender: FDA-Public Use
  Company Number: JP-AMGEN-JPNCT2011011382

PATIENT
  Age: 73 Year
  Sex: Male
  Weight: 54 kg

DRUGS (20)
  1. PANITUMUMAB [Suspect]
     Dosage: UNK, Q2WK
     Route: 041
     Dates: start: 20110323, end: 20110323
  2. OXALIPLATIN [Suspect]
     Indication: COLORECTAL CANCER
     Dosage: 100 MG, Q2WK
     Route: 041
     Dates: start: 20101020, end: 20110520
  3. HARNAL D [Concomitant]
     Indication: BENIGN PROSTATIC HYPERPLASIA
     Dosage: UNK UNK, QD
     Route: 048
  4. BERIZYM [Concomitant]
     Indication: CONSTIPATION
     Route: 048
  5. ANTIHISTAMINES [Concomitant]
     Indication: PROPHYLAXIS
     Route: 065
  6. PENTACILLIN [Concomitant]
     Route: 042
  7. MAGNESIUM SULFATE [Concomitant]
     Indication: CONSTIPATION
     Route: 048
  8. SECURA EXTRA PROTECTIVE CREAM [Concomitant]
     Indication: PROPHYLAXIS
     Route: 062
  9. LEVOLEUCOVORIN CALCIUM [Suspect]
     Indication: COLORECTAL CANCER
     Dosage: 200 MG, UNK
     Route: 041
     Dates: start: 20101020, end: 20110520
  10. CORTICOSTEROIDS [Concomitant]
     Indication: PROPHYLAXIS
     Route: 065
  11. PANITUMUMAB [Suspect]
     Dosage: UNK, Q2WK
     Route: 041
     Dates: start: 20110119, end: 20110119
  12. PANITUMUMAB [Suspect]
     Dosage: UNK, Q2WK
     Route: 041
     Dates: start: 20110318, end: 20110318
  13. KINDAVATE [Concomitant]
     Indication: PROPHYLAXIS
     Route: 062
  14. DEPAS [Concomitant]
     Indication: INSOMNIA
     Dosage: 0.5 MG, QD
     Route: 048
  15. PANITUMUMAB [Suspect]
     Dosage: UNK, Q2WK
     Route: 041
     Dates: start: 20101117, end: 20101117
  16. GARENOXACIN MESYLATE [Concomitant]
     Dosage: UNK
     Route: 048
  17. PANITUMUMAB [Suspect]
     Indication: COLORECTAL CANCER
     Dosage: UNK, Q2WK
     Route: 041
     Dates: start: 20101020, end: 20101020
  18. LEBENIN [Concomitant]
     Indication: CONSTIPATION
     Route: 048
  19. PANITUMUMAB [Suspect]
     Dosage: UNK, Q2WK
     Route: 041
     Dates: start: 20101215, end: 20101215
  20. FLUOROURACIL [Suspect]
     Indication: COLORECTAL CANCER
     Dosage: 750 MG, UNK
     Route: 041
     Dates: start: 20101020, end: 20110520

REACTIONS (3)
  - BRONCHOPNEUMONIA [None]
  - DERMATITIS ACNEIFORM [None]
  - THROMBOCYTOPENIA [None]
